FAERS Safety Report 17692661 (Version 1)
Quarter: 2020Q2

REPORT INFORMATION
  Report Type: Spontaneous
  Country: US (occurrence: US)
  Receive Date: 20200422
  Receipt Date: 20200422
  Transmission Date: 20200714
  Serious: Yes (Hospitalization, Other)
  Sender: FDA-Public Use
  Company Number: US-BRISTOL-MYERS SQUIBB COMPANY-BMS-2020-031245

PATIENT
  Age: 9 Decade
  Sex: Female
  Weight: 90.71 kg

DRUGS (3)
  1. COUMADIN [Suspect]
     Active Substance: WARFARIN SODIUM
     Indication: ATRIAL FIBRILLATION
     Dosage: UNAVAILABLE
     Route: 065
  2. PREDNISONE. [Concomitant]
     Active Substance: PREDNISONE
     Indication: DYSPNOEA
     Route: 065
  3. LISINOPRIL. [Concomitant]
     Active Substance: LISINOPRIL
     Indication: DYSPNOEA
     Route: 065

REACTIONS (6)
  - Staphylococcal infection [Unknown]
  - Contusion [Unknown]
  - Weight increased [Unknown]
  - International normalised ratio fluctuation [Unknown]
  - Arthropathy [Unknown]
  - Back pain [Unknown]
